FAERS Safety Report 4893586-4 (Version None)
Quarter: 2006Q1

REPORT INFORMATION
  Report Type: 
  Country: None (occurrence: None)
  Receive Date: 20060127
  Receipt Date: 20060123
  Transmission Date: 20060701
  Serious: Yes (Death, Hospitalization)
  Sender: FDA-Public Use
  Company Number: FR-AVENTIS-200610258FR

PATIENT
  Age: 56 Year
  Sex: Female

DRUGS (3)
  1. TAXOTERE [Suspect]
     Indication: BREAST CANCER
     Route: 042
     Dates: start: 20060101, end: 20060101
  2. MYOCET [Concomitant]
     Indication: BREAST CANCER
     Dates: start: 20060101, end: 20060101
  3. PROTEASE INHIBITORS [Concomitant]
     Indication: ACQUIRED IMMUNODEFICIENCY SYNDROME

REACTIONS (5)
  - BONE MARROW FAILURE [None]
  - CONCOMITANT DISEASE PROGRESSION [None]
  - DERMATITIS BULLOUS [None]
  - RENAL FAILURE ACUTE [None]
  - STEVENS-JOHNSON SYNDROME [None]
